FAERS Safety Report 5914911-9 (Version None)
Quarter: 2008Q4

REPORT INFORMATION
  Report Type: 
  Country: None (occurrence: None)
  Receive Date: 20081010
  Receipt Date: 20081010
  Transmission Date: 20090506
  Serious: Yes (Hospitalization, Disabling)
  Sender: FDA-Public Use
  Company Number: PHEH1999US04715

PATIENT
  Sex: Female
  Weight: 85.2 kg

DRUGS (3)
  1. MYCOPHENOLIC ACID [Suspect]
     Dosage: 720 MG, BID
     Route: 048
     Dates: start: 19990719, end: 19991013
  2. NEORAL [Suspect]
     Route: 048
     Dates: start: 19990719
  3. MEDROL [Suspect]
     Route: 048
     Dates: start: 19990719

REACTIONS (1)
  - BACTERIAL INFECTION [None]
